FAERS Safety Report 6195602-9 (Version None)
Quarter: 2009Q2

REPORT INFORMATION
  Report Type: 
  Country: None (occurrence: None)
  Receive Date: 20090519
  Receipt Date: 20090511
  Transmission Date: 20091009
  Serious: Yes (Hospitalization)
  Sender: FDA-Public Use
  Company Number: PHHO2009JP05977

PATIENT
  Sex: Female

DRUGS (1)
  1. RAD 666 RAD+TAB+PTR [Suspect]
     Indication: RENAL TRANSPLANT
     Dosage: 2.0 MG/DAY
     Route: 048
     Dates: start: 20090115

REACTIONS (1)
  - GASTROENTERITIS [None]
